FAERS Safety Report 15955820 (Version 1)
Quarter: 2019Q1

REPORT INFORMATION
  Report Type: Spontaneous
  Country: US (occurrence: US)
  Receive Date: 20190213
  Receipt Date: 20190213
  Transmission Date: 20190417
  Serious: Yes (Other)
  Sender: FDA-Public Use
  Company Number: US-ALKEM LABORATORIES LIMITED-US-ALKEM-2018-07111

PATIENT
  Age: 33 Year
  Sex: Male

DRUGS (1)
  1. GABAPENTIN. [Suspect]
     Active Substance: GABAPENTIN
     Indication: PRODUCT USED FOR UNKNOWN INDICATION
     Dosage: 3600 MG, QD
     Route: 065

REACTIONS (10)
  - Tachycardia [Recovering/Resolving]
  - Confusional state [Unknown]
  - Agitation [Unknown]
  - Withdrawal syndrome [Recovering/Resolving]
  - Drug dependence [Unknown]
  - Drug abuse [Unknown]
  - Hyperreflexia [Recovering/Resolving]
  - Tremor [Recovering/Resolving]
  - Hyperhidrosis [Recovering/Resolving]
  - Intentional product misuse [Unknown]
